FAERS Safety Report 7769814-4 (Version None)
Quarter: 2011Q3

REPORT INFORMATION
  Report Type: 
  Country: None (occurrence: None)
  Receive Date: 20110922
  Receipt Date: 20100806
  Transmission Date: 20111222
  Serious: No
  Sender: FDA-Public Use
  Company Number: US-ASTRAZENECA-2010SE37004

PATIENT
  Age: 46 Year
  Sex: Female
  Weight: 100.2 kg

DRUGS (1)
  1. SEROQUEL [Suspect]
     Indication: HALLUCINATION, AUDITORY
     Route: 048
     Dates: start: 20100701, end: 20100701

REACTIONS (2)
  - DRUG DOSE OMISSION [None]
  - MUSCLE SPASMS [None]
